FAERS Safety Report 7618514-X (Version None)
Quarter: 2011Q3

REPORT INFORMATION
  Report Type: 
  Country: None (occurrence: None)
  Receive Date: 20110718
  Receipt Date: 20100723
  Transmission Date: 20111222
  Serious: Yes (Death, Other)
  Sender: FDA-Public Use
  Company Number: US-BAYER-2011-005923

PATIENT
  Sex: Female

DRUGS (1)
  1. TRASYLOL [Suspect]
     Indication: CARDIAC OPERATION
     Dosage: UNK
     Route: 042
     Dates: start: 20030101

REACTIONS (9)
  - EMOTIONAL DISTRESS [None]
  - INJURY [None]
  - DEPRESSION [None]
  - NERVOUSNESS [None]
  - DEATH [None]
  - ANXIETY [None]
  - FEAR OF DEATH [None]
  - RENAL FAILURE [None]
  - PAIN [None]
